FAERS Safety Report 8367268-0 (Version None)
Quarter: 2012Q2

REPORT INFORMATION
  Report Type: 
  Country: None (occurrence: None)
  Receive Date: 20120517
  Receipt Date: 20120508
  Transmission Date: 20120825
  Serious: Yes (Life-Threatening, Other)
  Sender: FDA-Public Use
  Company Number: PT-BRISTOL-MYERS SQUIBB COMPANY-16577447

PATIENT
  Age: 27 Year
  Sex: Male

DRUGS (5)
  1. MIGRETIL [Interacting]
  2. STAVUDINE [Suspect]
     Indication: HIV INFECTION
  3. LAMIVUDINE (EPIVIR HBV) [Suspect]
     Indication: HIV INFECTION
  4. INDINIVIR SULFATE [Interacting]
     Indication: HIV INFECTION
  5. RITONAVIR [Interacting]
     Indication: HIV INFECTION

REACTIONS (6)
  - PERIPHERAL ISCHAEMIA [None]
  - VOMITING [None]
  - MALAISE [None]
  - PAIN IN EXTREMITY [None]
  - NAUSEA [None]
  - PERIPHERAL COLDNESS [None]
